FAERS Safety Report 8621878-1 (Version None)
Quarter: 2012Q3

REPORT INFORMATION
  Report Type: 
  Country: None (occurrence: None)
  Receive Date: 20120822
  Receipt Date: 20120822
  Transmission Date: 20120928
  Serious: Yes (Other)
  Sender: FDA-Public Use
  Company Number: None

PATIENT
  Age: 54 Year
  Sex: Male

DRUGS (1)
  1. ZELBORAF [Suspect]
     Indication: MALIGNANT MELANOMA
     Dosage: 3 TABLETS (770 MG) Q12H PO
     Route: 048
     Dates: start: 20120410, end: 20120623

REACTIONS (2)
  - DRY SKIN [None]
  - RASH [None]
